FAERS Safety Report 7326608-1 (Version None)
Quarter: 2011Q1

REPORT INFORMATION
  Report Type: 
  Country: None (occurrence: None)
  Receive Date: 20110302
  Receipt Date: 20110203
  Transmission Date: 20110831
  Serious: Yes (Life-Threatening, Hospitalization, Other)
  Sender: FDA-Public Use
  Company Number: IN-BAYER-2011-017583

PATIENT
  Sex: Female
  Weight: 66.2 kg

DRUGS (4)
  1. ACETYLSALICYLIC ACID SRT [Suspect]
  2. MULTIVITAMINS, OTHER COMBINATIONS [Concomitant]
     Indication: VITAMIN SUPPLEMENTATION
     Dosage: 1 DF, QD
     Route: 048
     Dates: start: 20080708
  3. ZONISAMIDE [Suspect]
     Indication: EPILEPSY
     Dosage: DAILY DOSE 300 MG
     Route: 048
     Dates: start: 20090827
  4. ESCITALOPRAM OXALATE [Concomitant]
     Indication: DEPRESSION
     Dosage: 5 MG, QD
     Route: 048
     Dates: start: 20080828

REACTIONS (10)
  - OESOPHAGITIS [None]
  - FALL [None]
  - ORTHOSTATIC HYPOTENSION [None]
  - VOMITING [None]
  - HAEMORRHAGE [None]
  - DUODENAL ULCER HAEMORRHAGE [None]
  - LOSS OF CONSCIOUSNESS [None]
  - FATIGUE [None]
  - DIZZINESS [None]
  - LIP INJURY [None]
